FAERS Safety Report 8684554 (Version 2)
Quarter: 2014Q1

REPORT INFORMATION
  Report Type: Report from Study
  Country: DE (occurrence: DE)
  Receive Date: 20120726
  Receipt Date: 20140320
  Transmission Date: 20141002
  Serious: Yes (Death)
  Sender: FDA-Public Use
  Company Number: DE-ROCHE-1092287

PATIENT
  Age: 82 Year
  Sex: Male
  Weight: 87.5 kg

DRUGS (11)
  1. METHOXY POLYETHYLENE GLYCOL-EPOETIN BETA [Suspect]
     Indication: ANAEMIA
     Dosage: LAST DOSE PRIOR TO SAE: 11/JAN/2012
     Route: 042
     Dates: start: 20110310
  2. METHOXY POLYETHYLENE GLYCOL-EPOETIN BETA [Suspect]
     Indication: RENAL FAILURE CHRONIC
  3. FERRLECIT (GERMANY) [Concomitant]
     Route: 065
     Dates: start: 20110310
  4. DEKRISTOL [Concomitant]
     Dosage: 11 TBL/ALL 2 WEEKS
     Route: 065
     Dates: start: 20110310
  5. CITALOPRAM [Concomitant]
     Route: 065
     Dates: start: 20100611
  6. TORASEMID [Concomitant]
     Route: 065
     Dates: start: 20100611
  7. RIVOTRIL [Concomitant]
     Route: 065
     Dates: start: 20100611
  8. MARCUMAR [Concomitant]
     Route: 065
     Dates: start: 20100611
  9. PANTOPRAZOL [Concomitant]
     Route: 065
     Dates: start: 20100611
  10. DREISAVIT N [Concomitant]
     Route: 065
     Dates: start: 20100702
  11. CARBIMAZOL [Concomitant]
     Route: 065
     Dates: start: 20100726

REACTIONS (1)
  - Myocardial infarction [Fatal]
